FAERS Safety Report 23696238 (Version 1)
Quarter: 2024Q2

REPORT INFORMATION
  Report Type: Spontaneous
  Country: CN (occurrence: CN)
  Receive Date: 20240402
  Receipt Date: 20240402
  Transmission Date: 20240716
  Serious: No
  Sender: FDA-Public Use
  Company Number: CN-ALKEM LABORATORIES LIMITED-CN-ALKEM-2023-16774

PATIENT
  Age: 69 Year
  Sex: Female

DRUGS (20)
  1. OLANZAPINE [Suspect]
     Active Substance: OLANZAPINE
     Indication: Tardive dyskinesia
     Dosage: 10 MG/D
     Route: 065
     Dates: start: 20111119
  2. OLANZAPINE [Suspect]
     Active Substance: OLANZAPINE
     Dosage: 10 MG/D
     Route: 065
     Dates: start: 20201012
  3. QUETIAPINE FUMARATE [Suspect]
     Active Substance: QUETIAPINE FUMARATE
     Indication: Tardive dyskinesia
     Dosage: 0.2 G/DAY
     Route: 065
     Dates: start: 20101109, end: 20101118
  4. QUETIAPINE FUMARATE [Suspect]
     Active Substance: QUETIAPINE FUMARATE
     Dosage: 0.2 G/DAY
     Route: 065
     Dates: start: 20201021, end: 20220608
  5. QUETIAPINE FUMARATE [Suspect]
     Active Substance: QUETIAPINE FUMARATE
     Dosage: 0.1 BID
     Route: 065
     Dates: start: 20220609, end: 20220611
  6. PROMETHAZINE [Suspect]
     Active Substance: PROMETHAZINE HYDROCHLORIDE
     Indication: Tardive dyskinesia
     Dosage: 25 MILLIGRAM, BID
     Route: 065
     Dates: start: 20201012
  7. PROMETHAZINE [Suspect]
     Active Substance: PROMETHAZINE HYDROCHLORIDE
     Dosage: 25 MILLIGRAM, BID
     Route: 065
     Dates: start: 20201021, end: 20220608
  8. PROMETHAZINE [Suspect]
     Active Substance: PROMETHAZINE HYDROCHLORIDE
     Dosage: 50 MILLIGRAM, TID
     Route: 065
     Dates: start: 20220609, end: 20220611
  9. ALPRAZOLAM [Suspect]
     Active Substance: ALPRAZOLAM
     Indication: Tardive dyskinesia
     Dosage: 0.4 MILLIGRAM, HS
     Route: 065
  10. ALPRAZOLAM [Suspect]
     Active Substance: ALPRAZOLAM
     Dosage: 0.4 MILLIGRAM, HS (QN)
     Route: 065
     Dates: start: 20101109, end: 20101118
  11. ALPRAZOLAM [Suspect]
     Active Substance: ALPRAZOLAM
     Dosage: 0.4 MILLIGRAM, HS (QN)
     Route: 065
     Dates: start: 20111119
  12. ALPRAZOLAM [Suspect]
     Active Substance: ALPRAZOLAM
     Dosage: 0.4 MILLIGRAM, HS (QN)
     Route: 065
     Dates: start: 20220609, end: 20220611
  13. DEUTETRABENAZINE [Suspect]
     Active Substance: DEUTETRABENAZINE
     Indication: Tardive dyskinesia
     Dosage: 6 MILLIGRAM, BID
     Route: 065
     Dates: start: 20220609, end: 20220611
  14. TRIHEXYPHENIDYL [Suspect]
     Active Substance: TRIHEXYPHENIDYL
     Indication: Tardive dyskinesia
     Dosage: 2 MILLIGRAM, BID
     Route: 065
     Dates: start: 20201012
  15. VITAMIN E [Suspect]
     Active Substance: .ALPHA.-TOCOPHEROL
     Indication: Tardive dyskinesia
     Dosage: UNK, QD (0.1/D)
     Route: 065
     Dates: start: 20101109, end: 20101118
  16. VITAMIN E [Suspect]
     Active Substance: .ALPHA.-TOCOPHEROL
     Dosage: UNK, QD (0.1/D)
     Route: 065
     Dates: start: 20111119
  17. VITAMIN E [Suspect]
     Active Substance: .ALPHA.-TOCOPHEROL
     Dosage: UNK, QD (0.1/D)
     Route: 065
     Dates: start: 20201021, end: 20220608
  18. VITAMIN E [Suspect]
     Active Substance: .ALPHA.-TOCOPHEROL
     Dosage: UNK, QD (0.1/D)
     Route: 065
     Dates: start: 20220609, end: 20220611
  19. AMLODIPINE BESYLATE [Concomitant]
     Active Substance: AMLODIPINE BESYLATE
     Indication: Hypertension
     Dosage: 10 MG/D
     Route: 065
  20. VALSARTAN [Concomitant]
     Active Substance: VALSARTAN
     Indication: Hypertension
     Dosage: 80 MG/D
     Route: 065

REACTIONS (1)
  - Drug ineffective [Unknown]
